FAERS Safety Report 6219720-1 (Version None)
Quarter: 2009Q2

REPORT INFORMATION
  Report Type: 
  Country: None (occurrence: None)
  Receive Date: 20090609
  Receipt Date: 20090601
  Transmission Date: 20091009
  Serious: Yes (Disabling, Other)
  Sender: FDA-Public Use
  Company Number: A0789528A

PATIENT
  Age: 69 Year

DRUGS (3)
  1. NICORETTE [Suspect]
     Indication: SMOKING CESSATION THERAPY
     Route: 002
  2. UNSPECIFIED MEDICATIONS [Suspect]
  3. COMMIT [Concomitant]
     Indication: SMOKING CESSATION THERAPY
     Route: 002
     Dates: start: 20081104

REACTIONS (3)
  - DENTAL CARIES [None]
  - DRY MOUTH [None]
  - TOOTH EROSION [None]
